FAERS Safety Report 6261073-7 (Version None)
Quarter: 2009Q3

REPORT INFORMATION
  Report Type: 
  Country: None (occurrence: None)
  Receive Date: 20090707
  Receipt Date: 20090626
  Transmission Date: 20100115
  Serious: Yes (Other)
  Sender: FDA-Public Use
  Company Number: CERZ-1000734

PATIENT
  Sex: Male

DRUGS (1)
  1. CEREZYME [Suspect]
     Indication: GAUCHER'S DISEASE

REACTIONS (5)
  - CLAVICLE FRACTURE [None]
  - FALL [None]
  - HEPATOSPLENOMEGALY [None]
  - RIB FRACTURE [None]
  - SKULL FRACTURE [None]
